FAERS Safety Report 6046711-6 (Version None)
Quarter: 2009Q1

REPORT INFORMATION
  Report Type: 
  Country: None (occurrence: None)
  Receive Date: 20090122
  Receipt Date: 20090113
  Transmission Date: 20090719
  Serious: Yes (Hospitalization, Other)
  Sender: FDA-Public Use
  Company Number: PHHO2007MX02341

PATIENT
  Sex: Female

DRUGS (4)
  1. TEGRETOL 400 LC [Suspect]
     Indication: EPILEPSY
     Dosage: 1.5 TABLETS (400MG)/DAY
     Route: 048
  2. TEGRETOL 400 LC [Suspect]
     Dosage: UNK
  3. TEGRETOL 400 LC [Suspect]
     Dosage: UNK
     Dates: start: 20090101
  4. ATEMPERATOR [Concomitant]

REACTIONS (7)
  - ABNORMAL BEHAVIOUR [None]
  - AGGRESSION [None]
  - CONSTIPATION [None]
  - DRUG LEVEL INCREASED [None]
  - EYE DISORDER [None]
  - REPETITIVE SPEECH [None]
  - SKIN DISCOLOURATION [None]
